FAERS Safety Report 24381035 (Version 2)
Quarter: 2024Q4

REPORT INFORMATION
  Report Type: Report from Study
  Country: CA (occurrence: CA)
  Receive Date: 20240930
  Receipt Date: 20241030
  Transmission Date: 20250115
  Serious: Yes (Hospitalization)
  Sender: ABBVIE
  Company Number: CA-ABBVIE-5941824

PATIENT
  Age: 53 Year
  Sex: Female

DRUGS (1)
  1. RINVOQ [Suspect]
     Active Substance: UPADACITINIB
     Indication: Crohn^s disease
     Dosage: FORM STRENGTH: 30 MG?LAST ADMIN DATE 2024
     Route: 048
     Dates: start: 20240413

REACTIONS (4)
  - Intestinal obstruction [Recovering/Resolving]
  - Swelling [Unknown]
  - Dysphagia [Unknown]
  - Scar [Unknown]

NARRATIVE: CASE EVENT DATE: 20240101
